FAERS Safety Report 16955181 (Version 1)
Quarter: 2019Q4

REPORT INFORMATION
  Report Type: Spontaneous
  Country: GB (occurrence: GB)
  Receive Date: 20191024
  Receipt Date: 20191024
  Transmission Date: 20200122
  Serious: Yes (Other)
  Sender: FDA-Public Use
  Company Number: GB-TEVA-2019-GB-1125909

PATIENT
  Age: 60 Year
  Sex: Female
  Weight: 76 kg

DRUGS (8)
  1. TRIMETHOPRIM. [Concomitant]
     Active Substance: TRIMETHOPRIM
     Dosage: 2 DF; FOR THREE DAYS
     Dates: start: 20190927
  2. CODEINE PHOSPHATE [Concomitant]
     Active Substance: CODEINE PHOSPHATE
     Dosage: TAKE ONE TO TWO TABLETS EVERY 4-6 HOURS WHEN NEEDED
     Dates: start: 20190731, end: 20190828
  3. AMITRIPTYLINE HYDROCHLORIDE. [Concomitant]
     Active Substance: AMITRIPTYLINE HYDROCHLORIDE
     Dosage: 1 DF; AT NIGHT
     Dates: start: 20190802, end: 20190830
  4. DIPROBASE [Concomitant]
     Active Substance: CHLOROCRESOL
     Dosage: USE AS DIRECTED
     Dates: start: 20190906
  5. DIAZEPAM. [Concomitant]
     Active Substance: DIAZEPAM
     Dosage: 1 DF; THREE TIMES A DAY
     Dates: start: 20190802, end: 20190807
  6. FLUOXETINE [Concomitant]
     Active Substance: FLUOXETINE HYDROCHLORIDE
     Dosage: 2 DF
     Dates: start: 20190312
  7. NITROFURANTOIN. [Suspect]
     Active Substance: NITROFURANTOIN
     Dosage: 200 MG; FOR THREE DAYS
     Route: 065
     Dates: start: 20190926
  8. PREDNISOLONE. [Concomitant]
     Active Substance: PREDNISOLONE
     Dosage: 8 DF WITH FOOD
     Dates: start: 20190906, end: 20190907

REACTIONS (3)
  - Pain [Recovering/Resolving]
  - Rash macular [Recovering/Resolving]
  - Pruritus [Recovering/Resolving]

NARRATIVE: CASE EVENT DATE: 20190926
